FAERS Safety Report 6979245-2 (Version None)
Quarter: 2010Q3

REPORT INFORMATION
  Report Type: 
  Country: None (occurrence: None)
  Receive Date: 20100913
  Receipt Date: 20100901
  Transmission Date: 20110219
  Serious: Yes (Other)
  Sender: FDA-Public Use
  Company Number: BR-PFIZER INC-2010110232

PATIENT
  Age: 35 Year
  Sex: Female
  Weight: 53 kg

DRUGS (4)
  1. CHAMPIX [Suspect]
     Indication: TOBACCO USER
     Dosage: UNK
     Route: 048
     Dates: start: 20100826
  2. CHAMPIX [Suspect]
     Dosage: 0.5 MG, 2X/DAY, EVERY 12 HOURS
     Route: 048
  3. CHAMPIX [Suspect]
     Dosage: 1 MG, 2X/DAY, EVERY 12 HOURS
     Route: 048
  4. ATROVENT [Concomitant]
     Indication: BRONCHITIS
     Dosage: UNK

REACTIONS (13)
  - BLOOD PRESSURE INCREASED [None]
  - CRYING [None]
  - DECREASED APPETITE [None]
  - DIZZINESS [None]
  - DRY MOUTH [None]
  - HEADACHE [None]
  - IRRITABILITY [None]
  - MITRAL VALVE PROLAPSE [None]
  - NAUSEA [None]
  - NERVOUSNESS [None]
  - THIRST [None]
  - VENTRICULAR TACHYCARDIA [None]
  - WEIGHT DECREASED [None]
